FAERS Safety Report 7493078-2 (Version None)
Quarter: 2011Q2

REPORT INFORMATION
  Report Type: 
  Country: None (occurrence: None)
  Receive Date: 20110520
  Receipt Date: 20110513
  Transmission Date: 20111010
  Serious: No
  Sender: FDA-Public Use
  Company Number: US-PFIZER INC-2011104399

PATIENT
  Sex: Female
  Weight: 49 kg

DRUGS (2)
  1. PREMARIN [Suspect]
     Indication: OESTROGEN THERAPY
     Dosage: 1.25 MG, 1X/DAY
     Route: 048
     Dates: start: 20110309
  2. XANAX [Concomitant]
     Indication: NERVOUS SYSTEM DISORDER
     Dosage: UNK, AS NEEDED

REACTIONS (1)
  - MEDICATION RESIDUE [None]
